FAERS Safety Report 11896842 (Version 1)
Quarter: 2016Q1

REPORT INFORMATION
  Report Type: Report from Study
  Country: IL (occurrence: IL)
  Receive Date: 20160107
  Receipt Date: 20160107
  Transmission Date: 20160526
  Serious: Yes (Other)
  Sender: FDA-Public Use
  Company Number: IL-ABBVIE-15P-082-1443824-00

PATIENT
  Age: 80 Year
  Sex: Male

DRUGS (1)
  1. DUODOPA [Suspect]
     Active Substance: CARBIDOPA\LEVODOPA
     Indication: PARKINSON^S DISEASE
     Route: 050
     Dates: start: 20150202

REACTIONS (6)
  - Infection [Unknown]
  - Skin cancer [Unknown]
  - Seborrhoea [Unknown]
  - Peripheral swelling [Unknown]
  - Oedema peripheral [Unknown]
  - Wound [Unknown]
